FAERS Safety Report 9277373 (Version 1)
Quarter: 2013Q2

REPORT INFORMATION
  Report Type: Spontaneous
  Country: US (occurrence: None)
  Receive Date: 20130503
  Receipt Date: 20130503
  Transmission Date: 20140414
  Serious: Yes (Hospitalization)
  Sender: FDA-Public Use
  Company Number: None

PATIENT
  Sex: Male

DRUGS (1)
  1. AMIODARONE [Suspect]

REACTIONS (4)
  - Pneumonia [None]
  - Multi-organ disorder [None]
  - Skin disorder [None]
  - Lung disorder [None]
